FAERS Safety Report 13727203 (Version 1)
Quarter: 2017Q3

REPORT INFORMATION
  Report Type: Spontaneous
  Country: US (occurrence: US)
  Receive Date: 20170707
  Receipt Date: 20170707
  Transmission Date: 20171127
  Serious: Yes (Other)
  Sender: FDA-Public Use
  Company Number: US-MYLANLABS-2017M1038537

PATIENT

DRUGS (3)
  1. METHYLPHENIDATE HYDROCHLORIDE EXTENDED-RELEASE TABLETS USP [Suspect]
     Active Substance: METHYLPHENIDATE HYDROCHLORIDE
     Indication: ATTENTION DEFICIT/HYPERACTIVITY DISORDER
     Dosage: 36 MG, AM
     Route: 048
     Dates: start: 201701, end: 201705
  2. METHYLPHENIDATE HYDROCHLORIDE EXTENDED-RELEASE TABLETS USP [Suspect]
     Active Substance: METHYLPHENIDATE HYDROCHLORIDE
     Indication: ATTENTION DEFICIT/HYPERACTIVITY DISORDER
     Dosage: 54 MG, AM
     Route: 048
     Dates: start: 201701, end: 201705
  3. INTUNIV [Concomitant]
     Active Substance: GUANFACINE HYDROCHLORIDE
     Indication: ATTENTION DEFICIT/HYPERACTIVITY DISORDER
     Dosage: 4 MG, DAILY

REACTIONS (2)
  - Drug ineffective [Recovered/Resolved]
  - Road traffic accident [Recovered/Resolved]

NARRATIVE: CASE EVENT DATE: 201701
